FAERS Safety Report 18095959 (Version 1)
Quarter: 2020Q3

REPORT INFORMATION
  Report Type: Spontaneous
  Country: DE (occurrence: DE)
  Receive Date: 20200730
  Receipt Date: 20200730
  Transmission Date: 20201103
  Serious: Yes (Congenital Anomaly, Other)
  Sender: FDA-Public Use
  Company Number: DE-ALLERGAN-2027996US

PATIENT
  Sex: Female
  Weight: 2.47 kg

DRUGS (6)
  1. ESCITALOPRAM OXALATE ? BP [Suspect]
     Active Substance: ESCITALOPRAM OXALATE
     Indication: EXPOSURE DURING PREGNANCY
     Dosage: 15 [MG/D (BIS 10) ]/ DOSAGE WAS REDUCED TO 10 MG/D AT GW 17 3/7
     Route: 064
     Dates: start: 20190315, end: 20191214
  2. IBUPROFEN. [Concomitant]
     Active Substance: IBUPROFEN
     Indication: EXPOSURE DURING PREGNANCY
     Dosage: 400 [MG/D ]/ ONE OR 2 TABLETS IN THE ^MIDDLE OF THE PREGNANCY^
     Route: 064
  3. CYTOTEC [Concomitant]
     Active Substance: MISOPROSTOL
     Indication: EXPOSURE DURING PREGNANCY
     Route: 064
     Dates: start: 20191212, end: 20191212
  4. SYMBICORT [Concomitant]
     Active Substance: BUDESONIDE\FORMOTEROL FUMARATE DIHYDRATE
     Indication: EXPOSURE DURING PREGNANCY
     Dosage: NOT REGULARLY, TWICE OR THREE TIMES PER WEEK.
     Route: 064
     Dates: start: 20190315, end: 20191129
  5. ASPIRIN PLUS C [Concomitant]
     Active Substance: ASCORBIC ACID\ASPIRIN
     Indication: EXPOSURE DURING PREGNANCY
     Dosage: ONE OR 2 TABLETS IN THE ^MIDDLE OF THE PREGNANCY^
     Route: 064
  6. JOHANNISKRAUT?KAPSELN [Suspect]
     Active Substance: HYPERICUM PERFORATUM EXTRACT
     Indication: EXPOSURE DURING PREGNANCY
     Dosage: UNK
     Route: 064
     Dates: start: 20190902, end: 20191129

REACTIONS (4)
  - Small for dates baby [Recovering/Resolving]
  - Foetal exposure during pregnancy [Unknown]
  - Haemangioma congenital [Not Recovered/Not Resolved]
  - Birth mark [Unknown]

NARRATIVE: CASE EVENT DATE: 20191214
